FAERS Safety Report 15858156 (Version 2)
Quarter: 2019Q1

REPORT INFORMATION
  Report Type: Spontaneous
  Country: BE (occurrence: BE)
  Receive Date: 20190123
  Receipt Date: 20190222
  Transmission Date: 20190417
  Serious: Yes (Other)
  Sender: FDA-Public Use
  Company Number: BE-BAYER-2019-014032

PATIENT
  Age: 22 Year
  Sex: Female

DRUGS (1)
  1. JAYDESS 13,5 MG [Suspect]
     Active Substance: LEVONORGESTREL
     Dosage: 14 MCG/24HR, CONT
     Route: 015

REACTIONS (10)
  - Device dislocation [None]
  - Metrorrhagia [Recovered/Resolved]
  - Abortion infected [Recovered/Resolved]
  - Vaginitis gardnerella [None]
  - Pyrexia [Recovered/Resolved]
  - Pregnancy with contraceptive device [Recovered/Resolved]
  - Abdominal pain lower [Recovered/Resolved]
  - Pelvic pain [Recovered/Resolved]
  - Drug ineffective [None]
  - Tachycardia [Recovered/Resolved]
